FAERS Safety Report 10221367 (Version 1)
Quarter: 2014Q2

REPORT INFORMATION
  Report Type: Spontaneous
  Country: US (occurrence: US)
  Receive Date: 20140606
  Receipt Date: 20140606
  Transmission Date: 20141212
  Serious: No
  Sender: FDA-Public Use
  Company Number: US-BAYER-2014-084599

PATIENT
  Age: 72 Year
  Sex: Male
  Weight: 72.56 kg

DRUGS (2)
  1. ALEVE TABLET [Suspect]
     Indication: MYALGIA
     Dosage: 1 DF, PRN
     Route: 048
     Dates: start: 20140603
  2. VICODIN [Concomitant]

REACTIONS (1)
  - Drug ineffective [Unknown]
